FAERS Safety Report 4823378-3 (Version None)
Quarter: 2005Q4

REPORT INFORMATION
  Report Type: 
  Country: None (occurrence: None)
  Receive Date: 20051107
  Receipt Date: 20051028
  Transmission Date: 20060501
  Serious: Yes (Other)
  Sender: FDA-Public Use
  Company Number: HQWYE216817JUL04

PATIENT
  Age: 51 Year
  Sex: Female
  Weight: 82.63 kg

DRUGS (5)
  1. PREMPRO [Suspect]
     Indication: HYSTERECTOMY
     Dosage: ORAL
     Route: 048
     Dates: start: 19870101, end: 19990101
  2. ESTRATEST H.S. [Suspect]
     Indication: HORMONE REPLACEMENT THERAPY
     Dosage: ORAL
     Route: 048
  3. PREMARIN [Suspect]
     Indication: HYSTERECTOMY
     Dosage: 0.9MG TABLET DAILY, ORAL
     Route: 048
     Dates: start: 19870101, end: 19990101
  4. PROVERA [Suspect]
     Indication: HYSTERECTOMY
     Dosage: 2.5 MG TABLET DAILY, ORAL
     Route: 048
     Dates: start: 19870101, end: 19990101
  5. TESTOSTERONE [Suspect]
     Indication: HYSTERECTOMY
     Dosage: ORAL
     Route: 048
     Dates: start: 19870101, end: 19990101

REACTIONS (16)
  - ALOPECIA [None]
  - ASTHENIA [None]
  - BIOPSY BREAST ABNORMAL [None]
  - BREAST CANCER METASTATIC [None]
  - BREAST CYST [None]
  - BREAST MASS [None]
  - BURSITIS [None]
  - DEPRESSION [None]
  - HYPOAESTHESIA [None]
  - METASTASES TO LYMPH NODES [None]
  - NAUSEA [None]
  - POSITRON EMISSION TOMOGRAM ABNORMAL [None]
  - POST PROCEDURAL COMPLICATION [None]
  - ROTATOR CUFF SYNDROME [None]
  - SWELLING [None]
  - WHITE BLOOD CELL COUNT DECREASED [None]
